FAERS Safety Report 8104036-9 (Version None)
Quarter: 2012Q1

REPORT INFORMATION
  Report Type: 
  Country: None (occurrence: None)
  Receive Date: 20120130
  Receipt Date: 20120116
  Transmission Date: 20120608
  Serious: Yes (Other)
  Sender: FDA-Public Use
  Company Number: FK201200108

PATIENT
  Age: 88 Year
  Sex: Female

DRUGS (10)
  1. BISOPROLOL FUMARATE [Concomitant]
  2. FLIXOTIDE (FLUTICASONE) [Concomitant]
  3. NITRAZEPAM [Concomitant]
  4. CLOPIDOGREL [Suspect]
     Indication: ACUTE CORONARY SYNDROME
     Dosage: 75 MG, 1 IN 1 D,ORAL
     Route: 048
     Dates: start: 20111214
  5. FUROSEMIDE [Concomitant]
  6. OMEPRAZOLE [Concomitant]
  7. PROCHLORPERAZINE [Concomitant]
  8. SIMVASTATIN [Concomitant]
  9. MEROPENEM [Suspect]
     Indication: UROSEPSIS
     Dosage: 1 GM, 3 IN 1 D,INTRAVENOUS (NOT OTHERWISE SPECIFIED)
     Route: 042
     Dates: start: 20111217, end: 20111217
  10. TIOTROPIUM [Concomitant]

REACTIONS (2)
  - DYSGEUSIA [None]
  - HYPOPHAGIA [None]
